FAERS Safety Report 7941373-2 (Version None)
Quarter: 2011Q4

REPORT INFORMATION
  Report Type: 
  Country: None (occurrence: None)
  Receive Date: 20111122
  Receipt Date: 20111122
  Transmission Date: 20120403
  Serious: No
  Sender: FDA-Public Use
  Company Number: None

PATIENT
  Sex: Female
  Weight: 58.0604 kg

DRUGS (2)
  1. CRESTOR [Suspect]
     Dosage: 10 MG
     Dates: start: 20111022
  2. CRESTOR [Suspect]
     Dosage: 10 MG
     Dates: start: 20111011

REACTIONS (8)
  - MYALGIA [None]
  - BONE PAIN [None]
  - EYE PAIN [None]
  - HEADACHE [None]
  - FATIGUE [None]
  - EYE SWELLING [None]
  - NAUSEA [None]
  - PAIN [None]
